FAERS Safety Report 14408452 (Version 2)
Quarter: 2018Q1

REPORT INFORMATION
  Report Type: Report from Study
  Country: None (occurrence: NL)
  Receive Date: 20180118
  Receipt Date: 20180221
  Transmission Date: 20180509
  Serious: Yes (Hospitalization, Other)
  Sender: FDA-Public Use
  Company Number: NL-ABBVIE-18K-114-2224978-00

PATIENT
  Age: 77 Year
  Sex: Male

DRUGS (1)
  1. DUODOPA [Suspect]
     Active Substance: CARBIDOPA\LEVODOPA
     Indication: PARKINSON^S DISEASE
     Dosage: MD 14, CD 4.2, ED 2
     Route: 050
     Dates: start: 20150416

REACTIONS (7)
  - Stoma site pain [Unknown]
  - Wrong technique in device usage process [Unknown]
  - Stoma site reaction [Not Recovered/Not Resolved]
  - Oesophageal stenosis [Recovered/Resolved]
  - Medical device pain [Not Recovered/Not Resolved]
  - Intentional medical device removal by patient [Unknown]
  - Device breakage [Unknown]

NARRATIVE: CASE EVENT DATE: 20180111
